FAERS Safety Report 13246140 (Version 1)
Quarter: 2017Q1

REPORT INFORMATION
  Report Type: Spontaneous
  Country: CA (occurrence: CA)
  Receive Date: 20170217
  Receipt Date: 20170217
  Transmission Date: 20170428
  Serious: Yes (Hospitalization)
  Sender: FDA-Public Use
  Company Number: CA-TEVA-741374ACC

PATIENT
  Age: 58 Year
  Sex: Female
  Weight: 64 kg

DRUGS (7)
  1. HUMULIN NOS [Concomitant]
     Active Substance: INSULIN HUMAN
  2. METOCLOPRAMIDE. [Concomitant]
     Active Substance: METOCLOPRAMIDE
  3. BUPIVACAINE 0.5% AND EPINEPHRINE 1:200,000 [Concomitant]
  4. FENTANYL. [Concomitant]
     Active Substance: FENTANYL
  5. HYDROMORPHONE [Concomitant]
     Active Substance: HYDROMORPHONE
  6. ONDANSETRON [Suspect]
     Active Substance: ONDANSETRON
     Indication: PROCEDURAL NAUSEA
     Route: 042
  7. METOPROLOL. [Concomitant]
     Active Substance: METOPROLOL

REACTIONS (5)
  - Sinus bradycardia [Recovered/Resolved]
  - Throat tightness [Recovered/Resolved]
  - Atrioventricular block complete [Recovered/Resolved]
  - Chest pain [Recovered/Resolved]
  - Malaise [Recovered/Resolved]
